FAERS Safety Report 16347520 (Version 1)
Quarter: 2019Q2

REPORT INFORMATION
  Report Type: Spontaneous
  Country: FR (occurrence: FR)
  Receive Date: 20190523
  Receipt Date: 20190523
  Transmission Date: 20190711
  Serious: Yes (Other)
  Sender: FDA-Public Use
  Company Number: FR-AUROBINDO-AUR-APL-2019-028628

PATIENT

DRUGS (3)
  1. VORICONAZOLE. [Suspect]
     Active Substance: VORICONAZOLE
     Indication: PRODUCT USED FOR UNKNOWN INDICATION
     Dosage: UNK
     Route: 065
  2. MABELIO [Suspect]
     Active Substance: CEFTOBIPROLE
     Indication: STAPHYLOCOCCAL BACTERAEMIA
  3. MABELIO [Suspect]
     Active Substance: CEFTOBIPROLE
     Indication: PNEUMONIA STAPHYLOCOCCAL
     Dosage: UNK
     Route: 065

REACTIONS (3)
  - Respiratory distress [Unknown]
  - Seizure [Recovered/Resolved]
  - Off label use [Unknown]
